FAERS Safety Report 13375629 (Version 1)
Quarter: 2017Q1

REPORT INFORMATION
  Report Type: Spontaneous
  Country: JP (occurrence: JP)
  Receive Date: 20170328
  Receipt Date: 20170328
  Transmission Date: 20170429
  Serious: Yes (Hospitalization, Other)
  Sender: FDA-Public Use
  Company Number: JP-ENDO PHARMACEUTICALS INC-2017-001452

PATIENT
  Age: 31 Year
  Sex: Female

DRUGS (2)
  1. FUROSEMIDE TABLETS [Suspect]
     Active Substance: FUROSEMIDE
     Indication: WEIGHT DECREASED
  2. FUROSEMIDE TABLETS [Suspect]
     Active Substance: FUROSEMIDE
     Indication: URINE OUTPUT
     Dosage: }200 MG PER DAY
     Route: 065

REACTIONS (5)
  - Drug abuse [Unknown]
  - Hypokalaemia [Unknown]
  - Nephrocalcinosis [Unknown]
  - Off label use [Unknown]
  - Ileus paralytic [Unknown]
